FAERS Safety Report 24076666 (Version 3)
Quarter: 2024Q4

REPORT INFORMATION
  Report Type: Spontaneous
  Country: GB (occurrence: GB)
  Receive Date: 20240711
  Receipt Date: 20241122
  Transmission Date: 20250115
  Serious: Yes (Hospitalization, Other)
  Sender: CELLTRION
  Company Number: GB-CELLTRION INC.-2024GB016291

PATIENT

DRUGS (1)
  1. INFLIXIMAB [Suspect]
     Active Substance: INFLIXIMAB
     Indication: Crohn^s disease
     Dosage: 120 MG EVERY 2 WEEKS
     Route: 058
     Dates: start: 20240415

REACTIONS (4)
  - General physical health deterioration [Not Recovered/Not Resolved]
  - Intestinal resection [Unknown]
  - Drug ineffective [Not Recovered/Not Resolved]
  - Intentional dose omission [Not Recovered/Not Resolved]
